FAERS Safety Report 5485094-7 (Version None)
Quarter: 2007Q4

REPORT INFORMATION
  Report Type: 
  Country: None (occurrence: None)
  Receive Date: 20071015
  Receipt Date: 20071009
  Transmission Date: 20080405
  Serious: Yes (Other)
  Sender: FDA-Public Use
  Company Number: PHNR2007AU01966

PATIENT
  Age: 57 Year
  Sex: Female

DRUGS (2)
  1. VITAMINS [Concomitant]
  2. LAMISIL [Suspect]
     Indication: NAIL TINEA
     Dates: start: 20070926

REACTIONS (6)
  - AGGRESSION [None]
  - CRYING [None]
  - DEPRESSION SUICIDAL [None]
  - HEPATIC PAIN [None]
  - SELF ESTEEM DECREASED [None]
  - SENSITIVITY OF TEETH [None]
